FAERS Safety Report 9775839 (Version 3)
Quarter: 2014Q1

REPORT INFORMATION
  Report Type: Spontaneous
  Country: US (occurrence: US)
  Receive Date: 20131220
  Receipt Date: 20140214
  Transmission Date: 20141002
  Serious: Yes (Death, Hospitalization)
  Sender: FDA-Public Use
  Company Number: US-GLAXOSMITHKLINE-A1054194A

PATIENT
  Age: 68 Year
  Sex: Female
  Weight: 78.9 kg

DRUGS (31)
  1. PROMACTA [Suspect]
     Indication: INTENSIVE CARE
     Dosage: 50MG UNKNOWN
     Route: 065
     Dates: start: 20131004
  2. VIDAZA [Concomitant]
     Indication: MYELODYSPLASTIC SYNDROME
  3. RITUXIMAB [Concomitant]
     Indication: NON-HODGKIN^S LYMPHOMA
  4. CYCLOPHOSPHAMIDE [Concomitant]
     Indication: NON-HODGKIN^S LYMPHOMA
  5. VINCRISTINE SULFATE [Concomitant]
     Indication: NON-HODGKIN^S LYMPHOMA
  6. PREDNISONE [Concomitant]
     Indication: NON-HODGKIN^S LYMPHOMA
  7. RITUXAN [Concomitant]
  8. BENDAMUSTINE HYDROCHLORIDE [Concomitant]
  9. ALLEGRA [Concomitant]
  10. AMICAR [Concomitant]
  11. ASPIRIN [Concomitant]
  12. ATIVAN [Concomitant]
  13. COMPAZINE [Concomitant]
  14. CORDARONE [Concomitant]
  15. EMLA [Concomitant]
  16. K-TAB [Concomitant]
  17. LASIX [Concomitant]
  18. LOPID [Concomitant]
  19. METFORMIN [Concomitant]
  20. MS CONTIN [Concomitant]
  21. NEURONTIN [Concomitant]
  22. PERI-COLACE [Concomitant]
  23. PHENERGAN [Concomitant]
  24. PRILOSEC [Concomitant]
  25. RITALIN [Concomitant]
  26. TYLENOL EXTRA STRENGTH [Concomitant]
  27. VALIUM [Concomitant]
  28. ZOCOR [Concomitant]
  29. ZOFRAN [Concomitant]
  30. ZOLOFT [Concomitant]
  31. ZOVIRAX [Concomitant]

REACTIONS (3)
  - Myelodysplastic syndrome [Fatal]
  - Pancytopenia [Not Recovered/Not Resolved]
  - Hospice care [Not Recovered/Not Resolved]
